FAERS Safety Report 8184456-7 (Version None)
Quarter: 2012Q1

REPORT INFORMATION
  Report Type: 
  Country: None (occurrence: None)
  Receive Date: 20120305
  Receipt Date: 20120222
  Transmission Date: 20120608
  Serious: Yes (Death, Hospitalization)
  Sender: FDA-Public Use
  Company Number: US-JNJFOC-20120213008

PATIENT
  Age: 37 Year
  Sex: Female
  Weight: 74.7 kg

DRUGS (1)
  1. TYLENOL PM [Suspect]
     Indication: PRODUCT USED FOR UNKNOWN INDICATION
     Dosage: 5 TABS 3-4 TIMES PER DAY FOR THE PAST SEVERAL DAYS
     Route: 048
     Dates: start: 20120201

REACTIONS (3)
  - OVERDOSE [None]
  - ACUTE HEPATIC FAILURE [None]
  - RENAL FAILURE [None]
